FAERS Safety Report 12174382 (Version 2)
Quarter: 2016Q2

REPORT INFORMATION
  Report Type: Report from Study
  Country: DE (occurrence: DE)
  Receive Date: 20160312
  Receipt Date: 20160408
  Transmission Date: 20160815
  Serious: Yes (Hospitalization)
  Sender: FDA-Public Use
  Company Number: DE-BRISTOL-MYERS SQUIBB COMPANY-BMS-2016-017587

PATIENT
  Age: 82 Year
  Sex: Female
  Weight: 55 kg

DRUGS (29)
  1. NIVOLUMAB [Suspect]
     Active Substance: NIVOLUMAB
     Dosage: 168 MG, UNK
     Route: 065
     Dates: start: 20150722, end: 20150722
  2. NIVOLUMAB [Suspect]
     Active Substance: NIVOLUMAB
     Dosage: 165 MG, UNK
     Route: 065
     Dates: start: 20150805, end: 20150805
  3. NIVOLUMAB [Suspect]
     Active Substance: NIVOLUMAB
     Dosage: 157 MG, UNK
     Route: 065
     Dates: start: 20151105, end: 20151105
  4. NIVOLUMAB [Suspect]
     Active Substance: NIVOLUMAB
     Dosage: 162 MG, UNK
     Route: 065
     Dates: start: 20151217, end: 20151217
  5. NIVOLUMAB [Suspect]
     Active Substance: NIVOLUMAB
     Dosage: 165 MG, UNK
     Route: 065
     Dates: start: 20150507, end: 20150507
  6. NIVOLUMAB [Suspect]
     Active Substance: NIVOLUMAB
     Dosage: 168 MG, UNK
     Route: 065
     Dates: start: 20150708, end: 20150708
  7. NIVOLUMAB [Suspect]
     Active Substance: NIVOLUMAB
     Dosage: 165 MG, UNK
     Route: 065
     Dates: start: 20150423, end: 20150423
  8. NIVOLUMAB [Suspect]
     Active Substance: NIVOLUMAB
     Dosage: 161 MG, UNK
     Route: 065
     Dates: start: 20151203, end: 20151203
  9. SYMBICORT [Concomitant]
     Active Substance: BUDESONIDE\FORMOTEROL FUMARATE DIHYDRATE
     Indication: PRODUCT USED FOR UNKNOWN INDICATION
     Dosage: UNK
     Route: 065
     Dates: start: 1990
  10. NIVOLUMAB [Suspect]
     Active Substance: NIVOLUMAB
     Dosage: 165 MG, UNK
     Route: 065
     Dates: start: 20150409, end: 20150409
  11. NIVOLUMAB [Suspect]
     Active Substance: NIVOLUMAB
     Dosage: 165 MG, UNK
     Route: 065
     Dates: start: 20150624, end: 20150624
  12. NIVOLUMAB [Suspect]
     Active Substance: NIVOLUMAB
     Dosage: 159 MG, UNK
     Route: 065
     Dates: start: 20150924, end: 20150924
  13. NIVOLUMAB [Suspect]
     Active Substance: NIVOLUMAB
     Dosage: 158 MG, UNK
     Route: 065
     Dates: start: 20151119, end: 20151119
  14. NIVOLUMAB [Suspect]
     Active Substance: NIVOLUMAB
     Dosage: 165 MG, UNK
     Route: 065
     Dates: start: 20160129, end: 20160129
  15. L-THYROXIN [Concomitant]
     Active Substance: LEVOTHYROXINE SODIUM
     Indication: PRODUCT USED FOR UNKNOWN INDICATION
     Dosage: UNK
     Route: 065
     Dates: start: 20150625
  16. AMLOBETA BESILAT [Concomitant]
     Indication: PRODUCT USED FOR UNKNOWN INDICATION
     Dosage: 10 MG, UNK
     Route: 065
     Dates: start: 2013
  17. NIVOLUMAB [Suspect]
     Active Substance: NIVOLUMAB
     Dosage: 162 MG, UNK
     Route: 065
     Dates: start: 20160211, end: 20160211
  18. XARELTO [Concomitant]
     Active Substance: RIVAROXABAN
     Indication: PRODUCT USED FOR UNKNOWN INDICATION
     Dosage: 20 MG, UNK
     Route: 065
     Dates: start: 2013
  19. NIVOLUMAB [Suspect]
     Active Substance: NIVOLUMAB
     Indication: MALIGNANT MELANOMA
     Dosage: 167 MG, UNK; 3 MG/KG
     Route: 065
     Dates: start: 20150327, end: 20150327
  20. NIVOLUMAB [Suspect]
     Active Substance: NIVOLUMAB
     Dosage: 167 MG, UNK
     Route: 065
     Dates: start: 20150521, end: 20150521
  21. NIVOLUMAB [Suspect]
     Active Substance: NIVOLUMAB
     Dosage: 162 MG, UNK
     Route: 065
     Dates: start: 20150903, end: 20150903
  22. NIVOLUMAB [Suspect]
     Active Substance: NIVOLUMAB
     Dosage: 161.4 MG, UNK
     Route: 065
     Dates: start: 20151022, end: 20151022
  23. BELOC-ZOK COMP [Concomitant]
     Active Substance: HYDROCHLOROTHIAZIDE\METOPROLOL SUCCINATE
     Indication: PRODUCT USED FOR UNKNOWN INDICATION
     Dosage: 95 MG, UNK
     Route: 065
     Dates: start: 2013
  24. NIVOLUMAB [Suspect]
     Active Substance: NIVOLUMAB
     Dosage: 168 MG, UNK
     Route: 065
     Dates: start: 20150610, end: 20150610
  25. NIVOLUMAB [Suspect]
     Active Substance: NIVOLUMAB
     Dosage: 159 MG, UNK
     Route: 065
     Dates: start: 20151008, end: 20151008
  26. NIVOLUMAB [Suspect]
     Active Substance: NIVOLUMAB
     Dosage: 164 MG, UNK
     Route: 065
     Dates: start: 20151230, end: 20151230
  27. NIVOLUMAB [Suspect]
     Active Substance: NIVOLUMAB
     Dosage: 164 MG, UNK
     Route: 065
     Dates: start: 20160113, end: 20160113
  28. NIVOLUMAB [Suspect]
     Active Substance: NIVOLUMAB
     Dosage: 162 MG, UNK
     Route: 065
     Dates: start: 20160225, end: 20160225
  29. TORSEMIDE. [Concomitant]
     Active Substance: TORSEMIDE
     Indication: PRODUCT USED FOR UNKNOWN INDICATION
     Dosage: 5 MG, UNK
     Route: 065
     Dates: start: 2013

REACTIONS (1)
  - Back pain [Recovered/Resolved]

NARRATIVE: CASE EVENT DATE: 20160302
